FAERS Safety Report 10454993 (Version 2)
Quarter: 2014Q3

REPORT INFORMATION
  Report Type: Report from Study
  Country: US (occurrence: US)
  Receive Date: 20140915
  Receipt Date: 20140915
  Transmission Date: 20150326
  Serious: Yes (Other)
  Sender: FDA-Public Use
  Company Number: US-ALEXION PHARMACEUTICALS INC-A200700299

PATIENT
  Age: 46 Year
  Sex: Male

DRUGS (2)
  1. SOLIRIS [Suspect]
     Active Substance: ECULIZUMAB
     Indication: PAROXYSMAL NOCTURNAL HAEMOGLOBINURIA
     Dosage: UNK
     Route: 042
  2. VIDAZA [Suspect]
     Active Substance: AZACITIDINE
     Indication: PRODUCT USED FOR UNKNOWN INDICATION
     Dosage: UNK
     Dates: start: 20080204

REACTIONS (22)
  - Chromaturia [Unknown]
  - Muscle spasms [Unknown]
  - Cough [Unknown]
  - Dizziness [Unknown]
  - Abdominal pain [Recovering/Resolving]
  - Aplastic anaemia [Unknown]
  - Paraesthesia [Unknown]
  - Chest discomfort [Unknown]
  - Infusion related reaction [Unknown]
  - Blood iron increased [Unknown]
  - Haemolysis [Unknown]
  - Nasopharyngitis [Unknown]
  - Platelet count decreased [Recovering/Resolving]
  - Haemoglobin decreased [Recovering/Resolving]
  - Myelodysplastic syndrome [Unknown]
  - Haemoglobinuria [Unknown]
  - Biopsy bone marrow [Unknown]
  - Pain [Unknown]
  - Throat tightness [Unknown]
  - Muscle tightness [Unknown]
  - Musculoskeletal pain [Unknown]
  - Fatigue [Unknown]

NARRATIVE: CASE EVENT DATE: 200708
